FAERS Safety Report 23089804 (Version 3)
Quarter: 2023Q4

REPORT INFORMATION
  Report Type: Report from Study
  Country: US (occurrence: US)
  Receive Date: 20231020
  Receipt Date: 20231106
  Transmission Date: 20240110
  Serious: Yes (Other)
  Sender: FDA-Public Use
  Company Number: US-JAZZ PHARMACEUTICALS-2023-US-020839

PATIENT
  Age: 56 Year
  Sex: Female

DRUGS (3)
  1. XYWAV [Suspect]
     Active Substance: CALCIUM OXYBATE\MAGNESIUM OXYBATE\POTASSIUM OXYBATE\SODIUM OXYBATE
     Indication: Hypersomnia
     Dosage: 2.25 GRAM, BID, TWICE NIGHTLY
     Route: 048
     Dates: start: 20231006
  2. XYWAV [Suspect]
     Active Substance: CALCIUM OXYBATE\MAGNESIUM OXYBATE\POTASSIUM OXYBATE\SODIUM OXYBATE
     Dosage: 3.75G BID
     Route: 048
     Dates: start: 20231001, end: 20231018
  3. ADDERALL [Concomitant]
     Active Substance: AMPHETAMINE ASPARTATE\AMPHETAMINE SULFATE\DEXTROAMPHETAMINE SACCHARATE\DEXTROAMPHETAMINE SULFATE
     Indication: Product used for unknown indication
     Dosage: UNK
     Dates: start: 20230907

REACTIONS (10)
  - Facial paralysis [Recovered/Resolved]
  - Neck pain [Unknown]
  - Diarrhoea [Unknown]
  - Hangover [Unknown]
  - Condition aggravated [Unknown]
  - Cystitis interstitial [Unknown]
  - Migraine [Recovered/Resolved]
  - Nausea [Unknown]
  - Palpitations [Unknown]
  - Swelling face [Unknown]

NARRATIVE: CASE EVENT DATE: 20231001
